FAERS Safety Report 18660910 (Version 1)
Quarter: 2020Q4

REPORT INFORMATION
  Report Type: Other
  Country: ES (occurrence: ES)
  Receive Date: 20201224
  Receipt Date: 20201224
  Transmission Date: 20210114
  Serious: Yes (Death, Other)
  Sender: FDA-Public Use
  Company Number: ES-EMCURE PHARMACEUTICALS LTD-2020-EPL-002162

PATIENT
  Age: 46 Year
  Sex: Female

DRUGS (20)
  1. ZOLEDRONIC ACID [Suspect]
     Active Substance: ZOLEDRONIC ACID
     Indication: PRODUCT USED FOR UNKNOWN INDICATION
     Dosage: UNK
     Dates: start: 20180831
  2. PALBOCICLIB [Suspect]
     Active Substance: PALBOCICLIB
     Dosage: CYCLIC  (1ST CYCLE)
     Route: 048
     Dates: start: 20180831
  3. FULVESTRANT. [Suspect]
     Active Substance: FULVESTRANT
     Dosage: CYCLIC (12TH CYCLE)
     Route: 030
     Dates: start: 20190920
  4. FULVESTRANT. [Suspect]
     Active Substance: FULVESTRANT
     Dosage: CYCLIC (4TH CYCLE)
     Route: 030
     Dates: start: 20181123
  5. PALBOCICLIB [Suspect]
     Active Substance: PALBOCICLIB
     Indication: PRODUCT USED FOR UNKNOWN INDICATION
     Dosage: CYCLIC (7TH CYCLE)
     Route: 048
     Dates: start: 20190215
  6. FULVESTRANT. [Suspect]
     Active Substance: FULVESTRANT
     Indication: PRODUCT USED FOR UNKNOWN INDICATION
     Dosage: CYCLIC (1ST CYCLE)
     Route: 030
     Dates: start: 20180831
  7. METFORMIN [Concomitant]
     Active Substance: METFORMIN HYDROCHLORIDE
     Dates: start: 201904
  8. PALBOCICLIB [Suspect]
     Active Substance: PALBOCICLIB
     Dosage: CYCLIC (4TH CYCLE)
     Route: 048
     Dates: start: 20181123
  9. FULVESTRANT. [Suspect]
     Active Substance: FULVESTRANT
     Dosage: CYCLIC (7TH CYCLE)
     Route: 030
     Dates: start: 20190215
  10. TAXOL [Concomitant]
     Active Substance: PACLITAXEL
     Dosage: CYCLE DAY +1
     Dates: start: 20191018
  11. FULVESTRANT. [Suspect]
     Active Substance: FULVESTRANT
     Dosage: CYCLIC (14TH CYCLE)
     Route: 030
     Dates: start: 20190920
  12. TAXOL [Concomitant]
     Active Substance: PACLITAXEL
     Dosage: CYCLE DAY +1
     Dates: start: 20200221
  13. PALBOCICLIB [Suspect]
     Active Substance: PALBOCICLIB
     Dosage: UNK
     Route: 048
  14. PALBOCICLIB [Suspect]
     Active Substance: PALBOCICLIB
     Dosage: CYCLIC (14TH CYCLE)
     Route: 048
     Dates: start: 20190920
  15. PALBOCICLIB [Suspect]
     Active Substance: PALBOCICLIB
     Dosage: CYCLIC (12TH CYCLE)
     Route: 048
     Dates: start: 20190705
  16. FULVESTRANT. [Suspect]
     Active Substance: FULVESTRANT
     Dosage: CYCLIC (10TH CYCLE)
     Route: 030
     Dates: start: 20190705
  17. TAXOL [Concomitant]
     Active Substance: PACLITAXEL
     Dosage: CYCLE DAY +15
     Dates: start: 20191227
  18. TAXOL [Concomitant]
     Active Substance: PACLITAXEL
     Dosage: CYCLE DAY +15
     Dates: start: 20191118
  19. PALBOCICLIB [Suspect]
     Active Substance: PALBOCICLIB
     Dosage: CYCLIC (10TH CYCLE)
     Route: 048
     Dates: start: 20190510
  20. FULVESTRANT. [Suspect]
     Active Substance: FULVESTRANT
     Dosage: CYCLIC
     Route: 030
     Dates: start: 20190510

REACTIONS (11)
  - Skin toxicity [Unknown]
  - Blood glucose increased [Unknown]
  - Anaemia [Unknown]
  - Metastases to kidney [Unknown]
  - Metastases to retroperitoneum [Unknown]
  - Death [Fatal]
  - Metastases to lung [Unknown]
  - Asthenia [Unknown]
  - Seizure [Unknown]
  - Neoplasm progression [Unknown]
  - Metastases to liver [Unknown]

NARRATIVE: CASE EVENT DATE: 20190215
